FAERS Safety Report 7564828-1 (Version None)
Quarter: 2011Q2

REPORT INFORMATION
  Report Type: 
  Country: None (occurrence: None)
  Receive Date: 20110622
  Receipt Date: 20101216
  Transmission Date: 20111010
  Serious: No
  Sender: FDA-Public Use
  Company Number: US-MYLANLABS-2010S1023253

PATIENT
  Sex: Male
  Weight: 172.82 kg

DRUGS (7)
  1. CLOZAPINE [Suspect]
     Indication: SCHIZOPHRENIA, PARANOID TYPE
     Route: 048
  2. GEMFIBROZIL [Concomitant]
  3. METFORMIN HCL [Concomitant]
  4. GLIPIZIDE [Concomitant]
  5. ATENOLOL [Concomitant]
  6. ABILIFY [Concomitant]
  7. FAMOTIDINE [Concomitant]

REACTIONS (3)
  - WEIGHT INCREASED [None]
  - FURUNCLE [None]
  - ERECTILE DYSFUNCTION [None]
